FAERS Safety Report 4854284-6 (Version None)
Quarter: 2005Q4

REPORT INFORMATION
  Report Type: 
  Country: None (occurrence: None)
  Receive Date: 20051213
  Receipt Date: 20051213
  Transmission Date: 20060501
  Serious: Yes (Hospitalization)
  Sender: FDA-Public Use
  Company Number: None

PATIENT
  Age: 26 Year
  Sex: Female

DRUGS (1)
  1. RISPERIDONE [Suspect]
     Dosage: 4 MG PO
     Route: 048
     Dates: start: 20030101

REACTIONS (2)
  - CHOLECYSTITIS [None]
  - NEUTROPENIA [None]
